FAERS Safety Report 17072933 (Version 1)
Quarter: 2019Q4

REPORT INFORMATION
  Report Type: Other
  Country: TW (occurrence: TW)
  Receive Date: 20191125
  Receipt Date: 20191125
  Transmission Date: 20200122
  Serious: Yes (Death, Life-Threatening, Hospitalization)
  Sender: FDA-Public Use
  Company Number: TW-NOSTRUM LABORATORIES, INC.-2077187

PATIENT
  Age: 75 Year
  Sex: Male

DRUGS (1)
  1. RANITIDINE. [Suspect]
     Active Substance: RANITIDINE
     Indication: PROPHYLAXIS
     Route: 040

REACTIONS (2)
  - Anaphylactic reaction [Fatal]
  - Cardio-respiratory arrest [Fatal]
